FAERS Safety Report 17834461 (Version 1)
Quarter: 2020Q2

REPORT INFORMATION
  Report Type: Report from Study
  Country: None (occurrence: US)
  Receive Date: 20200528
  Receipt Date: 20200528
  Transmission Date: 20200714
  Serious: Yes (Death)
  Sender: FDA-Public Use
  Company Number: US-ABBVIE-20P-163-3421989-00

PATIENT
  Age: 84 Year

DRUGS (1)
  1. IMBRUVICA [Suspect]
     Active Substance: IBRUTINIB
     Indication: LEUKAEMIA
     Route: 048
     Dates: start: 20200427, end: 20200527

REACTIONS (1)
  - Death [Fatal]

NARRATIVE: CASE EVENT DATE: 20200527
